FAERS Safety Report 6815849-5 (Version None)
Quarter: 2010Q3

REPORT INFORMATION
  Report Type: 
  Country: None (occurrence: None)
  Receive Date: 20100705
  Receipt Date: 20100624
  Transmission Date: 20110219
  Serious: Yes (Hospitalization, Other)
  Sender: FDA-Public Use
  Company Number: US-BIOGENIDEC-2010BI021196

PATIENT
  Age: 48 Year
  Sex: Male
  Weight: 93 kg

DRUGS (1)
  1. AVONEX [Suspect]
     Indication: MULTIPLE SCLEROSIS
     Route: 030
     Dates: start: 20031101

REACTIONS (3)
  - COLITIS [None]
  - CROHN'S DISEASE [None]
  - PULMONARY EMBOLISM [None]
